FAERS Safety Report 17545243 (Version 1)
Quarter: 2020Q1

REPORT INFORMATION
  Report Type: Spontaneous
  Country: US (occurrence: US)
  Receive Date: 20200314
  Receipt Date: 20200314
  Transmission Date: 20200409
  Serious: Yes (Hospitalization, Disabling, Other)
  Sender: FDA-Public Use
  Company Number: None

PATIENT
  Age: 45 Year
  Sex: Female

DRUGS (12)
  1. FLUTICASONE 50MCG SPRAY [Concomitant]
  2. PREDNISONE 20 MG [Concomitant]
     Active Substance: PREDNISONE
  3. MORPHINE [Suspect]
     Active Substance: MORPHINE
     Indication: PROCEDURAL PAIN
  4. PALLADONE [Suspect]
     Active Substance: HYDROMORPHONE HYDROCHLORIDE
  5. HALLS DEFENSE [Concomitant]
  6. V8 JUICE [Concomitant]
  7. VICK^S DAYQUIL MULTI-COLD SYMPTOMS [Concomitant]
  8. HYSINGLA ER [Suspect]
     Active Substance: HYDROCODONE BITARTRATE
  9. OXYCONTIN [Suspect]
     Active Substance: OXYCODONE HYDROCHLORIDE
  10. ALEVE [Concomitant]
     Active Substance: NAPROXEN SODIUM
  11. CODEINE [Suspect]
     Active Substance: CODEINE
  12. ZITHROMYCIN [Concomitant]
     Active Substance: AZITHROMYCIN ANHYDROUS

REACTIONS (10)
  - Somnolence [None]
  - Eye pain [None]
  - Pain [None]
  - Inadequate analgesia [None]
  - Dysarthria [None]
  - Hallucinations, mixed [None]
  - Sleep disorder [None]
  - Loss of consciousness [None]
  - Incoherent [None]
  - Thrombosis [None]

NARRATIVE: CASE EVENT DATE: 20170119
